FAERS Safety Report 17341410 (Version 1)
Quarter: 2020Q1

REPORT INFORMATION
  Report Type: Spontaneous
  Country: US (occurrence: US)
  Receive Date: 20200129
  Receipt Date: 20200129
  Transmission Date: 20200409
  Serious: No
  Sender: FDA-Public Use
  Company Number: US-ALLERGAN-1916284US

PATIENT
  Age: 45 Year
  Sex: Female

DRUGS (6)
  1. BOTOX COSMETIC [Suspect]
     Active Substance: ONABOTULINUMTOXINA
     Indication: SKIN WRINKLING
     Dosage: 4 UNITS, SINGLE
     Dates: start: 20190408, end: 20190408
  2. BOTOX COSMETIC [Suspect]
     Active Substance: ONABOTULINUMTOXINA
     Dosage: UNK UNK, SINGLE
     Dates: start: 20190327, end: 20190327
  3. MULTIVITAMINS [Concomitant]
     Active Substance: VITAMINS
  4. BOTOX COSMETIC [Suspect]
     Active Substance: ONABOTULINUMTOXINA
     Indication: SKIN WRINKLING
     Dosage: 5 UNITS, SINGLE
     Dates: start: 20190408, end: 20190408
  5. COCONUT OIL [Concomitant]
     Active Substance: COCONUT OIL
  6. BOTOX COSMETIC [Suspect]
     Active Substance: ONABOTULINUMTOXINA
     Indication: SKIN WRINKLING
     Dosage: 21 UNITS, SINGLE
     Dates: start: 20190408, end: 20190408

REACTIONS (18)
  - Off label use [Unknown]
  - Swelling of eyelid [Recovered/Resolved]
  - Oropharyngeal pain [Recovered/Resolved]
  - Groin pain [Recovered/Resolved]
  - Injection site nodule [Recovered/Resolved]
  - Anxiety [Recovered/Resolved]
  - Dry eye [Recovered/Resolved]
  - Eyelid ptosis [Recovered/Resolved]
  - Headache [Recovered/Resolved]
  - Product preparation error [Unknown]
  - Vision blurred [Recovered/Resolved]
  - Hypoaesthesia [Not Recovered/Not Resolved]
  - Injection site haemorrhage [Recovered/Resolved]
  - Skin wrinkling [Recovered/Resolved]
  - Dry mouth [Recovered/Resolved]
  - Brow ptosis [Recovered/Resolved]
  - Dysgeusia [Recovered/Resolved]
  - Dizziness [Recovered/Resolved]

NARRATIVE: CASE EVENT DATE: 20190408
